FAERS Safety Report 20501090 (Version 1)
Quarter: 2022Q1

REPORT INFORMATION
  Report Type: Spontaneous
  Country: US (occurrence: US)
  Receive Date: 20220222
  Receipt Date: 20220222
  Transmission Date: 20220423
  Serious: Yes (Hospitalization, Other)
  Sender: FDA-Public Use
  Company Number: US-GLAXOSMITHKLINE-US2022AMR030486

PATIENT
  Sex: Male

DRUGS (4)
  1. ADVAIR HFA [Suspect]
     Active Substance: FLUTICASONE PROPIONATE\SALMETEROL XINAFOATE
     Indication: Asthma
     Dosage: UNK
  2. DUPIXENT [Suspect]
     Active Substance: DUPILUMAB
     Indication: Product used for unknown indication
     Dosage: UNK
     Dates: end: 202106
  3. PREDNISONE [Suspect]
     Active Substance: PREDNISONE
     Indication: Product used for unknown indication
     Dosage: 5 MG, QD
     Dates: start: 202107
  4. PREDNISONE [Suspect]
     Active Substance: PREDNISONE
     Dosage: 7.5 MG, QD

REACTIONS (8)
  - Asthma [Unknown]
  - Hypereosinophilic syndrome [Unknown]
  - Diabetes mellitus [Unknown]
  - Lymphadenopathy mediastinal [Unknown]
  - Eosinophil count increased [Unknown]
  - Cough [Unknown]
  - Wheezing [Unknown]
  - Dyspnoea [Unknown]
